FAERS Safety Report 5180919-7 (Version None)
Quarter: 2006Q4

REPORT INFORMATION
  Report Type: 
  Country: None (occurrence: None)
  Receive Date: 20061218
  Receipt Date: 20061218
  Transmission Date: 20070319
  Serious: Yes (Life-Threatening, Hospitalization, Disabling)
  Sender: FDA-Public Use
  Company Number: None

PATIENT
  Age: 6 Year
  Sex: Female
  Weight: 22.6799 kg

DRUGS (2)
  1. KEFLEX [Suspect]
     Indication: INFECTION
     Dates: start: 20061210, end: 20061212
  2. PAIN MED [Suspect]
     Indication: INFECTION
     Dates: start: 20061210, end: 20061212

REACTIONS (1)
  - STEVENS-JOHNSON SYNDROME [None]
